FAERS Safety Report 9950516 (Version 1)
Quarter: 2014Q1

REPORT INFORMATION
  Report Type: Report from Study
  Country: US (occurrence: US)
  Receive Date: 20140304
  Receipt Date: 20140304
  Transmission Date: 20141002
  Serious: No
  Sender: FDA-Public Use
  Company Number: US-ABBVIE-13P-163-1070299-00

PATIENT
  Age: 49 Year
  Sex: Female

DRUGS (13)
  1. HUMIRA [Suspect]
     Indication: ANKYLOSING SPONDYLITIS
     Dates: start: 201212, end: 201301
  2. HUMIRA [Suspect]
     Dates: start: 20130327
  3. CRESTOR [Suspect]
     Indication: PRODUCT USED FOR UNKNOWN INDICATION
  4. SPK [Concomitant]
     Indication: PRODUCT USED FOR UNKNOWN INDICATION
  5. NAPROSYN [Concomitant]
     Indication: PAIN
  6. VICODIN [Concomitant]
     Indication: PAIN
     Dosage: 5/500MG
  7. CHLORZOXAZONE [Concomitant]
     Indication: HYPOTONIA
  8. LUNESTA [Concomitant]
     Indication: INSOMNIA
     Dosage: AT NIGHT
  9. SYMPHORA [Concomitant]
     Indication: PRODUCT USED FOR UNKNOWN INDICATION
  10. PROBIOTICS [Concomitant]
     Indication: PRODUCT USED FOR UNKNOWN INDICATION
  11. CHROMIUM PICOLINATE [Concomitant]
     Indication: PRODUCT USED FOR UNKNOWN INDICATION
  12. SUPER OMEGA 3 [Concomitant]
     Indication: PRODUCT USED FOR UNKNOWN INDICATION
  13. OSTEO BIFLEX [Concomitant]
     Indication: PRODUCT USED FOR UNKNOWN INDICATION

REACTIONS (7)
  - Adverse drug reaction [Unknown]
  - Incorrect dose administered [Unknown]
  - Device malfunction [Unknown]
  - Injection site bruising [Recovering/Resolving]
  - Injection site swelling [Unknown]
  - Injection site pruritus [Unknown]
  - Pain [Unknown]
